FAERS Safety Report 7215039-0 (Version None)
Quarter: 2011Q1

REPORT INFORMATION
  Report Type: 
  Country: None (occurrence: None)
  Receive Date: 20110107
  Receipt Date: 20100719
  Transmission Date: 20110831
  Serious: No
  Sender: FDA-Public Use
  Company Number: A0871163A

PATIENT
  Age: 72 Year
  Sex: Male

DRUGS (10)
  1. NORVASC [Concomitant]
  2. SOMA [Concomitant]
  3. LISINOPRIL [Concomitant]
  4. PANTOPRAZOLE [Concomitant]
  5. VICODIN [Concomitant]
  6. LOVAZA [Suspect]
     Dosage: 1CAP TWICE PER DAY
     Route: 048
     Dates: start: 20100409
  7. FINASTERIDE [Concomitant]
  8. FLOMAX [Concomitant]
  9. IRON [Concomitant]
  10. ACETAMINOPHEN [Concomitant]

REACTIONS (1)
  - LOW DENSITY LIPOPROTEIN INCREASED [None]
